FAERS Safety Report 9963985 (Version 1)
Quarter: 2014Q1

REPORT INFORMATION
  Report Type: Spontaneous
  Country: JP (occurrence: JP)
  Receive Date: 20140305
  Receipt Date: 20140305
  Transmission Date: 20141002
  Serious: Yes (Other)
  Sender: FDA-Public Use
  Company Number: JP-TEVA-465897ISR

PATIENT
  Age: 48 Year
  Sex: Female

DRUGS (14)
  1. CLINDAMYCIN,INJ,600MG1AMPOULE [Suspect]
     Indication: INFECTION
     Dosage: 900 MILLIGRAM DAILY;
     Route: 030
     Dates: start: 20130410, end: 20130415
  2. PENTCILLIN [Concomitant]
     Indication: INFECTION
     Dosage: 1 GRAM DAILY;
     Route: 030
     Dates: start: 20130410, end: 20130415
  3. XYLOCAINE [Concomitant]
     Indication: INFECTION
     Dosage: 3 ML DAILY;
     Route: 030
     Dates: start: 20130410, end: 20130415
  4. PHENOBARBITAL [Concomitant]
     Dosage: 240 MILLIGRAM DAILY; IN THE MORNING AND EVENING
     Route: 048
  5. ALEVIATIN [Concomitant]
     Dosage: 420 MILLIGRAM DAILY; IN THE MORNING AND EVENING
     Route: 048
  6. DIAZEPAM [Concomitant]
     Dosage: 1.5 MILLIGRAM DAILY; IN THE EVENING
     Route: 048
  7. BENZALIN [Concomitant]
     Dosage: 4 MILLIGRAM DAILY; IN THE EVENING
     Route: 048
  8. MAGMITT TAB.330MG [Concomitant]
     Dosage: 330 MILLIGRAM DAILY; IN THE EVENING
     Route: 048
  9. HYSERENIN TABLETS [Concomitant]
     Dosage: 3600 MILLIGRAM DAILY; IN THE MORNING, IN THE EVENING, AND AT BEDTIME
     Route: 048
  10. GASTER [Concomitant]
     Dosage: 40 MILLIGRAM DAILY; IN THE MORNING AND EVENING
     Route: 048
  11. PULSMARIN A [Concomitant]
     Dosage: 81 MILLIGRAM DAILY; IN THE MORNING, IN THE EVENING, AND AT BED TIMES
     Route: 048
  12. MUCODYNE [Concomitant]
     Dosage: 3000 MILLIGRAM DAILY; IN THE MORNING, IN THE EVENING, AND AT BED TIMES
     Route: 048
  13. KLARICID [Concomitant]
     Dosage: 760 MILLIGRAM DAILY;
     Route: 048
     Dates: start: 20130416, end: 20130423
  14. ENTERONON-R [Concomitant]
     Dosage: 4 GRAM DAILY;
     Route: 048
     Dates: start: 20130416, end: 20130423

REACTIONS (3)
  - Injection site necrosis [Recovered/Resolved]
  - Injection site induration [Recovered/Resolved]
  - Injection site erythema [Recovered/Resolved]
